FAERS Safety Report 18716398 (Version 1)
Quarter: 2021Q1

REPORT INFORMATION
  Report Type: Spontaneous
  Country: US (occurrence: US)
  Receive Date: 20210107
  Receipt Date: 20210107
  Transmission Date: 20210419
  Serious: No
  Sender: FDA-Public Use
  Company Number: None

PATIENT
  Age: 60 Year
  Sex: Male

DRUGS (2)
  1. INDOMETHACIN. [Concomitant]
     Active Substance: INDOMETHACIN
  2. ZENPEP [Suspect]
     Active Substance: PANCRELIPASE AMYLASE\PANCRELIPASE LIPASE\PANCRELIPASE PROTEASE
     Indication: CHEMOTHERAPY
     Route: 048
     Dates: start: 20200925

REACTIONS (2)
  - Therapy interrupted [None]
  - Nephrolithiasis [None]

NARRATIVE: CASE EVENT DATE: 20201229
